FAERS Safety Report 4282900-9 (Version None)
Quarter: 2004Q1

REPORT INFORMATION
  Report Type: 
  Country: None (occurrence: None)
  Receive Date: 20040130
  Receipt Date: 20031013
  Transmission Date: 20041129
  Serious: No
  Sender: FDA-Public Use
  Company Number: US-BRISTOL-MYERS SQUIBB COMPANY-12409041

PATIENT
  Age: 48 Year
  Sex: Male
  Weight: 75 kg

DRUGS (4)
  1. SERZONE [Suspect]
     Indication: ANXIETY
     Dosage: BEGAN 200MG BID DAILY ^4 OR 5 YRS AGO^,STOPPED SERZONE,THEN RESTARTED + IS TAPERING DOSE
     Route: 048
  2. SERZONE [Suspect]
     Indication: INSOMNIA
     Dosage: BEGAN 200MG BID DAILY ^4 OR 5 YRS AGO^,STOPPED SERZONE,THEN RESTARTED + IS TAPERING DOSE
     Route: 048
  3. SYNTHROID [Concomitant]
  4. NEXIUM [Concomitant]

REACTIONS (3)
  - DIARRHOEA [None]
  - ENTEROCOLITIS [None]
  - FLATULENCE [None]
